FAERS Safety Report 8464927-6 (Version None)
Quarter: 2012Q2

REPORT INFORMATION
  Report Type: 
  Country: None (occurrence: None)
  Receive Date: 20120626
  Receipt Date: 20120614
  Transmission Date: 20120825
  Serious: Yes (Other)
  Sender: FDA-Public Use
  Company Number: US-SANOFI-AVENTIS-2012SA043003

PATIENT
  Age: 66 Year
  Sex: Male
  Weight: 76 kg

DRUGS (8)
  1. VITAMIN B COMPLEX CAP [Concomitant]
  2. FISH OIL [Concomitant]
  3. PLAVIX [Suspect]
     Route: 048
     Dates: start: 20060101
  4. ESOMEPRAZOLE [Suspect]
  5. ALL OTHER THERAPEUTIC PRODUCTS [Suspect]
     Dates: start: 20120401
  6. ROSUVASTATIN [Concomitant]
  7. ASPIRIN [Concomitant]
  8. PANTOPRAZOLE [Concomitant]

REACTIONS (14)
  - ASTHENIA [None]
  - ABDOMINAL DISTENSION [None]
  - DRUG INTERACTION [None]
  - MALAISE [None]
  - NAUSEA [None]
  - CHRONIC OBSTRUCTIVE PULMONARY DISEASE [None]
  - PROSTATIC DISORDER [None]
  - VASCULAR OCCLUSION [None]
  - ANAEMIA [None]
  - MUSCULAR WEAKNESS [None]
  - COLLATERAL CIRCULATION [None]
  - STENT PLACEMENT [None]
  - DIARRHOEA [None]
  - CONSTIPATION [None]
